FAERS Safety Report 7384750-3 (Version None)
Quarter: 2011Q1

REPORT INFORMATION
  Report Type: 
  Country: None (occurrence: None)
  Receive Date: 20110330
  Receipt Date: 20110324
  Transmission Date: 20110831
  Serious: Yes (Death, Other)
  Sender: FDA-Public Use
  Company Number: PHEH2006US15105

PATIENT
  Sex: Male
  Weight: 96.145 kg

DRUGS (67)
  1. VIVELLE [Concomitant]
     Route: 062
  2. LOVENOX [Concomitant]
     Dosage: 60 MG, QD
  3. LORAZEPAM [Concomitant]
  4. PENICILLIN VK [Concomitant]
  5. FENTANYL [Concomitant]
  6. ALOXI [Concomitant]
     Indication: NAUSEA
  7. HYDROCORTISONE [Concomitant]
  8. PROSCAR [Concomitant]
  9. MELLARIL [Concomitant]
  10. HYDROCODONE BITARTRATE [Concomitant]
  11. TEMAZEPAM [Concomitant]
  12. DILAUDID [Concomitant]
  13. PSEUDOEPHEDRINE HCL [Concomitant]
  14. TAXOTERE [Concomitant]
     Indication: PROSTATE CANCER
     Dosage: 30 MG/M2, WEEKLY FOR THREE TO FOUR WEEKS
  15. VIAGRA [Concomitant]
     Dosage: UNK, AS NEEDED
  16. ZANTAC [Concomitant]
     Dosage: 150 MG, QD
     Route: 048
  17. MS CONTIN [Concomitant]
  18. ZYPREXA [Concomitant]
     Dosage: 2.5 MG, QD
  19. EFFEXOR [Concomitant]
     Dosage: 1 DF, QD
  20. TRAMADOL [Concomitant]
  21. PERIOGARD [Concomitant]
  22. EMEND [Concomitant]
  23. ARANESP [Concomitant]
  24. LACTULOSE [Concomitant]
  25. GOSERELIN ACETATE [Concomitant]
  26. HALOPERIDOL [Concomitant]
  27. ATIVAN [Concomitant]
  28. LEUKINE [Concomitant]
  29. DOCUSATE [Concomitant]
  30. ZOMETA [Suspect]
     Indication: METASTASES TO BONE
  31. HYDROMORPHONE HCL [Concomitant]
     Dosage: UNK, AS NEEDED
  32. MEGACE [Concomitant]
     Dosage: 40 CC, QD
     Route: 048
  33. OXYCODONE [Concomitant]
  34. CALCITRIOL [Concomitant]
  35. LYRICA [Concomitant]
  36. CALCITRIOL [Concomitant]
  37. PAXIL [Concomitant]
     Dosage: 60 MG, QD
  38. IBUPROFEN [Concomitant]
     Dosage: 1800 MG, QD
  39. DULCOLAX [Concomitant]
  40. METHADONE [Concomitant]
  41. ACETAMINOPHEN [Concomitant]
  42. MODAFINIL [Concomitant]
  43. EMCYT [Concomitant]
  44. AMINOGLUTETHIMIDE [Concomitant]
  45. CYTOXAN [Concomitant]
  46. PRILOSEC [Concomitant]
  47. ENOXAPARIN [Concomitant]
  48. OMEPRAZOLE [Concomitant]
  49. DEXAMETHASONE [Concomitant]
     Dosage: 4 MG, QW2
  50. STRONTIUM [Concomitant]
  51. KETOCONAZOLE [Concomitant]
     Indication: PROSTATE CANCER
  52. LUPRON [Concomitant]
  53. COLACE [Concomitant]
  54. HYOSCYAMINE [Concomitant]
  55. OXYGEN [Concomitant]
  56. CHLORHEXIDINE GLUCONATE [Concomitant]
  57. PEPCID [Concomitant]
  58. GRANISETRON HCL [Concomitant]
  59. BEVACIZUMAB [Concomitant]
  60. ZOMETA [Suspect]
     Indication: PROSTATE CANCER
     Dosage: 4 MG, QMO
     Dates: start: 20041004
  61. PREDNISONE [Concomitant]
     Dosage: 5 MG, BID
  62. PROCHLORPERAZINE [Concomitant]
  63. CARBOPLATIN [Concomitant]
  64. AMBIEN [Concomitant]
  65. HALDOL [Concomitant]
  66. COMPAZINE [Concomitant]
  67. THALIDOMIDE [Concomitant]

REACTIONS (48)
  - DEATH [None]
  - GINGIVAL DISORDER [None]
  - NARCOLEPSY [None]
  - HYPOAESTHESIA [None]
  - SKIN ULCER [None]
  - NEUTROPENIA [None]
  - ANXIETY [None]
  - EMOTIONAL DISTRESS [None]
  - TOOTH INFECTION [None]
  - SOMNOLENCE [None]
  - ANAEMIA [None]
  - HYPOXIA [None]
  - PAIN [None]
  - PAIN IN JAW [None]
  - OSTEOARTHRITIS [None]
  - HAEMORRHOIDS [None]
  - RIB FRACTURE [None]
  - LACERATION [None]
  - DECREASED INTEREST [None]
  - TOOTH DISORDER [None]
  - MYALGIA [None]
  - GASTROOESOPHAGEAL REFLUX DISEASE [None]
  - CONSTIPATION [None]
  - BONE DISORDER [None]
  - ORAL PAIN [None]
  - MITRAL VALVE INCOMPETENCE [None]
  - TACHYCARDIA [None]
  - PANCYTOPENIA [None]
  - BLOOD OESTROGEN INCREASED [None]
  - HALLUCINATION, VISUAL [None]
  - OSTEONECROSIS OF JAW [None]
  - JAW DISORDER [None]
  - ARTHRALGIA [None]
  - WEIGHT DECREASED [None]
  - DEPRESSION [None]
  - GENERAL PHYSICAL HEALTH DETERIORATION [None]
  - METASTASES TO BONE [None]
  - TOOTHACHE [None]
  - IMPAIRED HEALING [None]
  - TENDERNESS [None]
  - OSTEOSCLEROSIS [None]
  - ATELECTASIS [None]
  - GAIT DISTURBANCE [None]
  - OEDEMA [None]
  - ASTHENIA [None]
  - GASTRIC MUCOSAL LESION [None]
  - NEOPLASM MALIGNANT [None]
  - PROSTATIC SPECIFIC ANTIGEN INCREASED [None]
